FAERS Safety Report 5817864-7 (Version None)
Quarter: 2008Q3

REPORT INFORMATION
  Report Type: 
  Country: None (occurrence: None)
  Receive Date: 20080722
  Receipt Date: 20070608
  Transmission Date: 20090109
  Serious: No
  Sender: FDA-Public Use
  Company Number: US-BAYER-US-2007-021562

PATIENT
  Age: 41 Year
  Sex: Male

DRUGS (1)
  1. MAGNEVIST [Suspect]
     Indication: NUCLEAR MAGNETIC RESONANCE IMAGING
     Dosage: UNIT DOSE: 18 ML
     Route: 042
     Dates: start: 20070607, end: 20070607

REACTIONS (5)
  - DYSPHONIA [None]
  - EYE SWELLING [None]
  - RHINORRHOEA [None]
  - SWELLING FACE [None]
  - SWOLLEN TONGUE [None]
